FAERS Safety Report 5422169-2 (Version None)
Quarter: 2007Q3

REPORT INFORMATION
  Report Type: 
  Country: None (occurrence: None)
  Receive Date: 20070821
  Receipt Date: 20070821
  Transmission Date: 20080115
  Serious: Yes (Life-Threatening)
  Sender: FDA-Public Use
  Company Number: None

PATIENT
  Age: 88 Year
  Sex: Male

DRUGS (2)
  1. SIMVASTATIN [Suspect]
     Indication: HYPERCHOLESTEROLAEMIA
     Dosage: SIMVASTATIN 80 MG ONCE DAILY PO
     Route: 048
     Dates: start: 20070813, end: 20070815
  2. AZITHROMYCIN [Suspect]
     Indication: PNEUMONIA
     Dosage: AZITHROMYCIN 500 MG ONCE DAILY IV
     Route: 042
     Dates: start: 20070809, end: 20070817

REACTIONS (6)
  - CHRONIC OBSTRUCTIVE PULMONARY DISEASE [None]
  - CONDITION AGGRAVATED [None]
  - DRUG INTERACTION [None]
  - PNEUMONIA [None]
  - RENAL FAILURE ACUTE [None]
  - RHABDOMYOLYSIS [None]
